FAERS Safety Report 19443111 (Version 2)
Quarter: 2021Q3

REPORT INFORMATION
  Report Type: Other
  Country: US (occurrence: US)
  Receive Date: 20210621
  Receipt Date: 20210921
  Transmission Date: 20211014
  Serious: No
  Sender: FDA-Public Use
  Company Number: US-ACORDA-ACO_169183_2021

PATIENT
  Sex: Male

DRUGS (1)
  1. INBRIJA [Suspect]
     Active Substance: LEVODOPA
     Indication: PARKINSON^S DISEASE
     Dosage: 84 MILLIGRAM, PRN (NOT TO EXCEED A TOTAL OF 5 DOSES
     Dates: start: 20201218

REACTIONS (6)
  - Wrong technique in device usage process [Unknown]
  - Device occlusion [Unknown]
  - Incorrect route of product administration [Unknown]
  - Drooling [Unknown]
  - Device issue [Unknown]
  - Dyspnoea [Unknown]
